FAERS Safety Report 5921554-X (Version None)
Quarter: 2008Q4

REPORT INFORMATION
  Report Type: 
  Country: None (occurrence: None)
  Receive Date: 20081016
  Receipt Date: 20081016
  Transmission Date: 20090506
  Serious: Yes (Hospitalization)
  Sender: FDA-Public Use
  Company Number: None

PATIENT
  Sex: Female
  Weight: 56.8811 kg

DRUGS (1)
  1. DACARBAZINE [Suspect]
     Indication: UTERINE LEIOMYOSARCOMA
     Dosage: 1320MG  X1 IVPB
     Route: 042
     Dates: start: 20080918

REACTIONS (1)
  - PNEUMOTHORAX [None]
